FAERS Safety Report 5647550-8 (Version None)
Quarter: 2008Q1

REPORT INFORMATION
  Report Type: 
  Country: None (occurrence: None)
  Receive Date: 20080131
  Receipt Date: 20071224
  Transmission Date: 20080703
  Serious: No
  Sender: FDA-Public Use
  Company Number: 163-21880-07121365

PATIENT
  Age: 69 Year
  Sex: Male

DRUGS (1)
  1. REVLIMID [Suspect]
     Indication: MULTIPLE MYELOMA
     Dosage: 10 MG, ONE CAPSULE DAILY MONDAY THROUGH FRIDAY, ORAL
     Route: 048
     Dates: start: 20070820

REACTIONS (1)
  - FATIGUE [None]
